FAERS Safety Report 5466128-2 (Version None)
Quarter: 2007Q3

REPORT INFORMATION
  Report Type: 
  Country: None (occurrence: None)
  Receive Date: 20070924
  Receipt Date: 20070912
  Transmission Date: 20080115
  Serious: Yes (Other)
  Sender: FDA-Public Use
  Company Number: BR-PFIZER INC-2004239079BR

PATIENT
  Sex: Female
  Weight: 51 kg

DRUGS (1)
  1. DEPO-PROVERA SUSPENSION/INJ [Suspect]
     Indication: CONTRACEPTION
     Dates: start: 19990101, end: 19990101

REACTIONS (12)
  - ALOPECIA [None]
  - AMENORRHOEA [None]
  - BREAST PAIN [None]
  - DIARRHOEA [None]
  - DIZZINESS [None]
  - EATING DISORDER [None]
  - FIBROMYALGIA [None]
  - LIVER DISORDER [None]
  - MALAISE [None]
  - NAUSEA [None]
  - VOMITING [None]
  - WEIGHT INCREASED [None]
